FAERS Safety Report 11286783 (Version 25)
Quarter: 2025Q1

REPORT INFORMATION
  Report Type: Report from Study
  Country: CA (occurrence: CA)
  Receive Date: 20150721
  Receipt Date: 20250227
  Transmission Date: 20250408
  Serious: Yes (Other)
  Sender: NOVARTIS
  Company Number: PHHY2015CA083694

PATIENT
  Age: 55 Year
  Sex: Male

DRUGS (16)
  1. ILARIS [Suspect]
     Active Substance: CANAKINUMAB
     Indication: Muckle-Wells syndrome
     Route: 058
     Dates: start: 20131212, end: 20160613
  2. ILARIS [Suspect]
     Active Substance: CANAKINUMAB
     Route: 058
     Dates: start: 20160808
  3. ILARIS [Suspect]
     Active Substance: CANAKINUMAB
     Route: 058
     Dates: start: 20170328
  4. ILARIS [Suspect]
     Active Substance: CANAKINUMAB
     Route: 058
     Dates: start: 20170511
  5. ILARIS [Suspect]
     Active Substance: CANAKINUMAB
     Route: 058
     Dates: start: 20170621
  6. ILARIS [Suspect]
     Active Substance: CANAKINUMAB
     Route: 065
     Dates: start: 20170829
  7. ILARIS [Suspect]
     Active Substance: CANAKINUMAB
     Route: 065
     Dates: start: 20171219
  8. ILARIS [Suspect]
     Active Substance: CANAKINUMAB
     Route: 065
     Dates: start: 20180203
  9. ILARIS [Suspect]
     Active Substance: CANAKINUMAB
     Route: 058
     Dates: start: 20180315
  10. ILARIS [Suspect]
     Active Substance: CANAKINUMAB
     Route: 058
     Dates: start: 20190730
  11. ILARIS [Suspect]
     Active Substance: CANAKINUMAB
     Route: 065
     Dates: start: 201807
  12. ILARIS [Suspect]
     Active Substance: CANAKINUMAB
     Route: 058
     Dates: start: 20190813
  13. ILARIS [Suspect]
     Active Substance: CANAKINUMAB
     Route: 058
     Dates: start: 20200206
  14. ILARIS [Suspect]
     Active Substance: CANAKINUMAB
     Route: 058
     Dates: start: 20210615
  15. ILARIS [Suspect]
     Active Substance: CANAKINUMAB
     Route: 058
  16. ASPIRIN [Concomitant]
     Active Substance: ASPIRIN
     Indication: Product used for unknown indication
     Dosage: 81 MG, QD
     Route: 065

REACTIONS (64)
  - Ocular vascular disorder [Unknown]
  - Visual acuity reduced [Unknown]
  - Visual impairment [Unknown]
  - Thalassaemia minor [Unknown]
  - Anaemia [Unknown]
  - Prostate cancer [Unknown]
  - Prostatic specific antigen increased [Unknown]
  - Prostate cancer recurrent [Unknown]
  - Blood pressure increased [Unknown]
  - Diabetes mellitus [Unknown]
  - Cataract [Unknown]
  - Cerebral small vessel ischaemic disease [Unknown]
  - Malaise [Recovering/Resolving]
  - Glycosylated haemoglobin increased [Unknown]
  - Anger [Unknown]
  - Feeling abnormal [Unknown]
  - Back pain [Unknown]
  - Musculoskeletal stiffness [Unknown]
  - Cardiac disorder [Unknown]
  - Feeling cold [Recovering/Resolving]
  - Tremor [Unknown]
  - Asthenia [Unknown]
  - Intervertebral disc space narrowing [Unknown]
  - Joint stiffness [Unknown]
  - Arthralgia [Recovered/Resolved]
  - Rash [Recovered/Resolved]
  - Blood test abnormal [Unknown]
  - Blood triglycerides abnormal [Unknown]
  - High density lipoprotein abnormal [Unknown]
  - Abnormal behaviour [Unknown]
  - General physical health deterioration [Unknown]
  - Drug withdrawal syndrome [Unknown]
  - Restlessness [Unknown]
  - Blood pressure decreased [Unknown]
  - Haemangioma [Unknown]
  - Clubbing [Unknown]
  - Blood urine present [Recovered/Resolved]
  - Discomfort [Unknown]
  - Pyrexia [Recovering/Resolving]
  - Haemorrhoids [Unknown]
  - Diarrhoea [Unknown]
  - Nasopharyngitis [Recovered/Resolved]
  - Ear congestion [Recovered/Resolved]
  - Fatigue [Recovered/Resolved]
  - Nasopharyngitis [Unknown]
  - Ear congestion [Unknown]
  - Conjunctivitis [Unknown]
  - Mean cell haemoglobin concentration abnormal [Unknown]
  - Haemoglobin abnormal [Unknown]
  - Haematocrit abnormal [Unknown]
  - Mean cell volume abnormal [Unknown]
  - Spinal osteoarthritis [Unknown]
  - Intervertebral disc degeneration [Unknown]
  - Osteoarthritis [Unknown]
  - Vertebral foraminal stenosis [Unknown]
  - Intervertebral disc protrusion [Unknown]
  - Thecal sac compression [Unknown]
  - Ligamentum flavum hypertrophy [Unknown]
  - Atrophy [Unknown]
  - Central nervous system lesion [Unknown]
  - Haemangioma [Unknown]
  - Testicular pain [Recovering/Resolving]
  - Cystitis [Unknown]
  - Mucosal inflammation [Unknown]

NARRATIVE: CASE EVENT DATE: 20150101
